FAERS Safety Report 17729799 (Version 1)
Quarter: 2020Q2

REPORT INFORMATION
  Report Type: Spontaneous
  Country: FR (occurrence: FR)
  Receive Date: 20200430
  Receipt Date: 20200430
  Transmission Date: 20200714
  Serious: Yes (Life-Threatening)
  Sender: FDA-Public Use
  Company Number: FR-PFIZER INC-2020171243

PATIENT
  Age: 59 Year
  Sex: Male

DRUGS (16)
  1. THERALENE [Interacting]
     Active Substance: TRIMEPRAZINE
     Indication: INSOMNIA
     Dosage: 50 MG, 1X/DAY
     Route: 048
  2. EZETIMIBE. [Concomitant]
     Active Substance: EZETIMIBE
     Indication: ISCHAEMIC HEART DISEASE PROPHYLAXIS
     Dosage: 10 MG, 1X/DAY
     Route: 048
  3. LOXAPINE. [Interacting]
     Active Substance: LOXAPINE
     Indication: DEPRESSION
     Dosage: 155 MG, 1X/DAY
     Route: 048
  4. PLAQUENIL [Interacting]
     Active Substance: HYDROXYCHLOROQUINE SULFATE
     Indication: CORONAVIRUS INFECTION
     Dosage: 600 MG, 1X/DAY
     Route: 048
     Dates: start: 20200401, end: 20200403
  5. RAMIPRIL. [Concomitant]
     Active Substance: RAMIPRIL
     Indication: ISCHAEMIC HEART DISEASE PROPHYLAXIS
     Dosage: 1.25 MG, 1X/DAY
     Route: 048
  6. MACROGOL 4000 [Concomitant]
     Active Substance: POLYETHYLENE GLYCOL 4000
     Dosage: UNK
     Route: 048
  7. NICOTINE. [Concomitant]
     Active Substance: NICOTINE
     Indication: NICOTINE DEPENDENCE
     Dosage: 12 MG, 1X/DAY
     Route: 048
  8. AKINETON [Concomitant]
     Active Substance: BIPERIDEN HYDROCHLORIDE
     Dosage: 4 MG
     Route: 048
  9. KARDEGIC [Concomitant]
     Active Substance: ASPIRIN DL-LYSINE
     Indication: ISCHAEMIC HEART DISEASE PROPHYLAXIS
     Dosage: 75 MG, 1X/DAY
     Route: 048
  10. VENLAFAXINE HCL [Suspect]
     Active Substance: VENLAFAXINE HYDROCHLORIDE
     Indication: DEPRESSION
     Dosage: 225 MG, 1X/DAY
     Route: 048
  11. NEBIVOLOL. [Concomitant]
     Active Substance: NEBIVOLOL
     Indication: ISCHAEMIC HEART DISEASE PROPHYLAXIS
     Dosage: 7.5 MG, 1X/DAY
     Route: 048
  12. PARACETAMOL [Concomitant]
     Active Substance: ACETAMINOPHEN
     Indication: PYREXIA
     Dosage: 1 G, 1X/DAY
     Route: 048
     Dates: start: 20200331
  13. ATORVASTATIN [Concomitant]
     Active Substance: ATORVASTATIN
     Indication: ISCHAEMIC HEART DISEASE PROPHYLAXIS
     Dosage: 40 MG, 1X/DAY
     Route: 048
  14. ZOPICLONE [Concomitant]
     Active Substance: ZOPICLONE
     Indication: INSOMNIA
     Dosage: 7.5 MG, 1X/DAY
     Route: 048
  15. DIAZEPAM. [Concomitant]
     Active Substance: DIAZEPAM
     Indication: DEPRESSION
     Dosage: 10 MG, 1X/DAY
     Route: 048
  16. NICOPATCH [Concomitant]
     Active Substance: NICOTINE
     Indication: NICOTINE DEPENDENCE
     Dosage: 7 MG, 1X/DAY
     Route: 062

REACTIONS (2)
  - Potentiating drug interaction [Not Recovered/Not Resolved]
  - Electrocardiogram QT prolonged [Not Recovered/Not Resolved]

NARRATIVE: CASE EVENT DATE: 2020
